FAERS Safety Report 18590259 (Version 1)
Quarter: 2020Q4

REPORT INFORMATION
  Report Type: Spontaneous
  Country: US (occurrence: US)
  Receive Date: 20201208
  Receipt Date: 20201208
  Transmission Date: 20210114
  Serious: No
  Sender: FDA-Public Use
  Company Number: US-TEVA-2020-US-1855534

PATIENT
  Age: 73 Year
  Sex: Female

DRUGS (3)
  1. AUSTEDO [Suspect]
     Active Substance: DEUTETRABENAZINE
     Indication: TARDIVE DYSKINESIA
     Dosage: 12 MILLIGRAM DAILY;
     Route: 065
     Dates: start: 20201007, end: 20201021
  2. ABILIFY ORAL TABLET 10 MG [Concomitant]
     Route: 048
  3. ADDERALL XR ORAL CAPSULE EXTENDED RELEASE 24H 20 MG [Concomitant]
     Route: 048

REACTIONS (2)
  - Vomiting [Recovered/Resolved]
  - Nausea [Recovered/Resolved]

NARRATIVE: CASE EVENT DATE: 202010
